FAERS Safety Report 14170060 (Version 4)
Quarter: 2024Q2

REPORT INFORMATION
  Report Type: Report from Study
  Country: CA (occurrence: CA)
  Receive Date: 20171108
  Receipt Date: 20240523
  Transmission Date: 20240716
  Serious: Yes (Hospitalization, Other)
  Sender: FDA-Public Use
  Company Number: PHHY2017CA161493

PATIENT
  Age: 47 Year
  Sex: Female

DRUGS (9)
  1. GILENYA [Suspect]
     Active Substance: FINGOLIMOD HYDROCHLORIDE
     Indication: Relapsing-remitting multiple sclerosis
     Dosage: 0.5 MG, QD
     Route: 048
     Dates: start: 20111031
  2. TEGRETOL [Concomitant]
     Active Substance: CARBAMAZEPINE
     Indication: Trigeminal neuralgia
     Dosage: 200 MG, BID
     Route: 065
  3. IMODIUM [Concomitant]
     Active Substance: LOPERAMIDE HYDROCHLORIDE
     Indication: Product used for unknown indication
     Dosage: UNK UNK, PRN
     Route: 065
  4. SERTRALINE [Concomitant]
     Active Substance: SERTRALINE HYDROCHLORIDE
     Indication: Product used for unknown indication
     Dosage: 50 MG, QD
     Route: 065
  5. SERTRALINE [Concomitant]
     Active Substance: SERTRALINE HYDROCHLORIDE
     Dosage: INCREASED TO 200 MG, QD
     Route: 065
  6. SERTRALINE [Concomitant]
     Active Substance: SERTRALINE HYDROCHLORIDE
     Dosage: DECREASED TO 150 MG, QD
     Route: 065
  7. VITAMIN D [Concomitant]
     Active Substance: VITAMIN D NOS
     Indication: Product used for unknown indication
     Dosage: 5000 IU, QD
     Route: 065
  8. CRESTOR [Concomitant]
     Active Substance: ROSUVASTATIN CALCIUM
     Indication: Product used for unknown indication
     Dosage: 10 MG, QD
     Route: 065
  9. OLEPTRO [Concomitant]
     Active Substance: TRAZODONE HYDROCHLORIDE
     Indication: Product used for unknown indication
     Dosage: 1 DOSAGE FORM, BID
     Route: 065

REACTIONS (36)
  - Pneumonia [Unknown]
  - Ophthalmoplegia [Unknown]
  - Optic atrophy [Unknown]
  - Trigeminal neuralgia [Unknown]
  - Eyelid pain [Recovered/Resolved]
  - Hypoaesthesia [Unknown]
  - Hypoaesthesia oral [Unknown]
  - Dysaesthesia [Unknown]
  - Arthralgia [Unknown]
  - Abdominal pain [Unknown]
  - Gait disturbance [Not Recovered/Not Resolved]
  - Fall [Unknown]
  - Urine flow decreased [Unknown]
  - Anxiety [Unknown]
  - Overweight [Unknown]
  - Facial asymmetry [Unknown]
  - Hypertonia [Unknown]
  - Muscular weakness [Unknown]
  - Decreased vibratory sense [Unknown]
  - Gait spastic [Unknown]
  - Ataxia [Unknown]
  - Sensory disturbance [Unknown]
  - Depression [Unknown]
  - Diarrhoea [Unknown]
  - Fatigue [Recovering/Resolving]
  - Back pain [Unknown]
  - Headache [Recovered/Resolved]
  - Lymphocyte count abnormal [Unknown]
  - Sexual dysfunction [Unknown]
  - Anal incontinence [Unknown]
  - Micturition urgency [Unknown]
  - Aphasia [Unknown]
  - Reading disorder [Unknown]
  - Memory impairment [Unknown]
  - Anger [Unknown]
  - Uhthoff^s phenomenon [Unknown]

NARRATIVE: CASE EVENT DATE: 20140801
